FAERS Safety Report 5382579-9 (Version None)
Quarter: 2007Q3

REPORT INFORMATION
  Report Type: 
  Country: None (occurrence: None)
  Receive Date: 20070710
  Receipt Date: 20070629
  Transmission Date: 20080115
  Serious: Yes (Other)
  Sender: FDA-Public Use
  Company Number: PHBS2007US11164

PATIENT
  Age: 86 Year
  Sex: Male

DRUGS (8)
  1. PAMIDRONATE DISODIUM [Suspect]
  2. AMLODIPINE BESYLATE [Concomitant]
  3. THALIDOMIDE [Concomitant]
  4. FOLIC ACID [Concomitant]
  5. ASPIRIN [Concomitant]
  6. AMOXICILLIN TRIHYDRATE [Concomitant]
  7. DEXAMETHASONE [Concomitant]
  8. EPOETIN ALFA [Concomitant]

REACTIONS (9)
  - BONE DISORDER [None]
  - MUCOSAL EROSION [None]
  - MUCOSAL INFLAMMATION [None]
  - OEDEMA MUCOSAL [None]
  - OSTEITIS [None]
  - OSTEONECROSIS [None]
  - PAIN IN JAW [None]
  - STOMATITIS [None]
  - TOOTH EXTRACTION [None]
